FAERS Safety Report 5720015-0 (Version None)
Quarter: 2008Q2

REPORT INFORMATION
  Report Type: 
  Country: None (occurrence: None)
  Receive Date: 20080424
  Receipt Date: 20080411
  Transmission Date: 20081010
  Serious: No
  Sender: FDA-Public Use
  Company Number: US023257

PATIENT
  Sex: Female

DRUGS (2)
  1. FENTORA [Suspect]
     Indication: DYSTONIA
     Dosage: BUCCAL
     Route: 002
  2. TYLENOL W/ CODEINE [Concomitant]

REACTIONS (1)
  - MEDICATION ERROR [None]
